FAERS Safety Report 24198507 (Version 1)
Quarter: 2024Q3

REPORT INFORMATION
  Report Type: Spontaneous
  Country: FR (occurrence: FR)
  Receive Date: 20240812
  Receipt Date: 20240812
  Transmission Date: 20241017
  Serious: Yes (Hospitalization)
  Sender: AUROBINDO
  Company Number: FR-AFSSAPS-NT2024000997

PATIENT
  Age: 71 Year
  Sex: Male

DRUGS (2)
  1. PEMETREXED [Suspect]
     Active Substance: PEMETREXED
     Indication: Lung neoplasm malignant
     Dosage: 1 DOSAGE FORM, EVERY 3 WEEKS
     Route: 042
     Dates: start: 202302
  2. KEYTRUDA [Concomitant]
     Active Substance: PEMBROLIZUMAB
     Indication: Lung neoplasm malignant
     Dosage: 1 DOSAGE FORM, EVERY 3 WEEKS
     Route: 042
     Dates: start: 202302

REACTIONS (1)
  - Cellulite [Recovering/Resolving]

NARRATIVE: CASE EVENT DATE: 20240719
